FAERS Safety Report 11938221 (Version 1)
Quarter: 2016Q1

REPORT INFORMATION
  Report Type: Spontaneous
  Country: US (occurrence: US)
  Receive Date: 20160122
  Receipt Date: 20160122
  Transmission Date: 20160526
  Serious: Yes (Other)
  Sender: FDA-Public Use
  Company Number: US-BAYER-2016-008830

PATIENT
  Age: 69 Year
  Sex: Male
  Weight: 65.76 kg

DRUGS (2)
  1. ALEVE [Suspect]
     Active Substance: NAPROXEN SODIUM
     Indication: BACK PAIN
     Dosage: 1 DF, QD
     Route: 048
     Dates: start: 2015
  2. ALEVE [Suspect]
     Active Substance: NAPROXEN SODIUM
     Indication: BACK PAIN
     Dosage: 1 DF, BID (SOME TIME - ONE IN MORNING AND ONE IN EVENING)
     Route: 048
     Dates: start: 2015

REACTIONS (2)
  - Drug dependence [None]
  - Product use issue [None]
